FAERS Safety Report 8888178 (Version 1)
Quarter: 2012Q4

REPORT INFORMATION
  Report Type: Report from Study
  Country: CA (occurrence: CA)
  Receive Date: 20121106
  Receipt Date: 20121106
  Transmission Date: 20130627
  Serious: Yes (Other)
  Sender: FDA-Public Use
  Company Number: CA-US-EMD SERONO, INC.-7171834

PATIENT
  Age: 32 None
  Sex: Female

DRUGS (2)
  1. REBIF [Suspect]
     Indication: RELAPSING-REMITTING MULTIPLE SCLEROSIS
     Route: 058
     Dates: start: 20110902, end: 20120701
  2. REBIF [Suspect]
     Route: 058
     Dates: start: 20121017

REACTIONS (3)
  - Abortion spontaneous [Recovered/Resolved]
  - Injection site bruising [Unknown]
  - Maternal exposure during pregnancy [Recovered/Resolved]
